FAERS Safety Report 8589721 (Version 2)
Quarter: 2013Q2

REPORT INFORMATION
  Report Type: Report from Study
  Country: US (occurrence: US)
  Receive Date: 20120601
  Receipt Date: 20130603
  Transmission Date: 20140414
  Serious: Yes (Hospitalization)
  Sender: FDA-Public Use
  Company Number: US-BIOGENIDEC-2012BI018869

PATIENT
  Age: 26 Year
  Sex: Female
  Weight: 46 kg

DRUGS (2)
  1. TYSABRI [Suspect]
     Indication: CROHN^S DISEASE
     Route: 042
     Dates: start: 20111019, end: 20120111
  2. PREDNISONE [Concomitant]

REACTIONS (1)
  - Crohn^s disease [Recovered/Resolved]
